FAERS Safety Report 4442132-8 (Version None)
Quarter: 2004Q3

REPORT INFORMATION
  Report Type: 
  Country: None (occurrence: None)
  Receive Date: 20040903
  Receipt Date: 20040722
  Transmission Date: 20050211
  Serious: Yes (Other)
  Sender: FDA-Public Use
  Company Number: 2004UW15413

PATIENT
  Age: 61 Year
  Sex: Male
  Weight: 90.7194 kg

DRUGS (2)
  1. CRESTOR [Suspect]
     Indication: BLOOD CHOLESTEROL INCREASED
     Dates: start: 20040401, end: 20040707
  2. UNSPECIFIED MEDICATIONS [Concomitant]

REACTIONS (3)
  - MUSCLE SPASMS [None]
  - PROSTATE INFECTION [None]
  - URINARY INCONTINENCE [None]
